FAERS Safety Report 4963505-0 (Version None)
Quarter: 2006Q2

REPORT INFORMATION
  Report Type: 
  Country: None (occurrence: None)
  Receive Date: 20060404
  Receipt Date: 20060404
  Transmission Date: 20061013
  Serious: Yes (Hospitalization)
  Sender: FDA-Public Use
  Company Number: None

PATIENT
  Age: 64 Year
  Sex: Male
  Weight: 85.2762 kg

DRUGS (1)
  1. VYTORIN [Suspect]
     Indication: DYSLIPIDAEMIA
     Dosage: 10 MG ESETIMIBE 20MG -SIMVASTATIN DAILY ORAL
     Route: 048
     Dates: start: 20051222, end: 20060304

REACTIONS (2)
  - ALCOHOLISM [None]
  - PANCREATITIS [None]
